FAERS Safety Report 12276736 (Version 1)
Quarter: 2016Q2

REPORT INFORMATION
  Report Type: Spontaneous
  Country: US (occurrence: US)
  Receive Date: 20160418
  Receipt Date: 20160418
  Transmission Date: 20160815
  Serious: No
  Sender: FDA-Public Use
  Company Number: US-PFIZER INC-2016192791

PATIENT
  Age: 77 Year
  Sex: Male

DRUGS (2)
  1. PROBENECID/COLCHICINE [Concomitant]
     Indication: GOUT
     Dosage: ONE A DAY TAKING OF PROBENECID AS ^5^ AND COLCHICINE AS ^50^
  2. GABAPENTIN. [Suspect]
     Active Substance: GABAPENTIN
     Indication: NEUROPATHY PERIPHERAL
     Dosage: 150 MG, THREE TIMES A DAY, TABLET, ORALLY
     Route: 048

REACTIONS (2)
  - Amnesia [Recovered/Resolved]
  - Drug ineffective for unapproved indication [Unknown]

NARRATIVE: CASE EVENT DATE: 201510
